FAERS Safety Report 6288097-8 (Version None)
Quarter: 2009Q3

REPORT INFORMATION
  Report Type: 
  Country: None (occurrence: None)
  Receive Date: 20090729
  Receipt Date: 20080717
  Transmission Date: 20100115
  Serious: No
  Sender: FDA-Public Use
  Company Number: A0738441A

PATIENT
  Age: 76 Year
  Sex: Male

DRUGS (10)
  1. ZANTAC [Suspect]
     Dosage: 150MG AS REQUIRED
     Route: 048
     Dates: start: 20050101
  2. MEDICATION FOR HIGH BLOOD PRESSURE [Concomitant]
  3. ZOCOR [Concomitant]
  4. ASPIRIN [Concomitant]
  5. CALCIUM [Concomitant]
  6. FISH OIL [Concomitant]
  7. MULTI-VITAMIN [Concomitant]
  8. GLUCOSAMINE WITH CHONDROITIN [Concomitant]
  9. GLUCOTROL [Concomitant]
  10. GAVISCON [Concomitant]

REACTIONS (1)
  - BLOOD PRESSURE INCREASED [None]
